FAERS Safety Report 4477740-1 (Version None)
Quarter: 2004Q4

REPORT INFORMATION
  Report Type: 
  Country: None (occurrence: None)
  Receive Date: 20041014
  Receipt Date: 20041001
  Transmission Date: 20050328
  Serious: Yes (Other)
  Sender: FDA-Public Use
  Company Number: 163-20785-04100115

PATIENT

DRUGS (3)
  1. THALIDOMIDE\PLACEBO (CAPSULES) [Suspect]
     Dosage: SEE IMAGE,  ORALLY
     Route: 048
     Dates: start: 20030210
  2. LEUPROLIDE (L) OR GOSERELIN (G) [Suspect]
     Dosage: SEE IMAGE, SC
     Route: 058
     Dates: start: 20030210
  3. LEUPROLIDE (L) OR GOSERELIN (G) [Suspect]
     Dosage: SEE IMAGE, SC
     Route: 058
     Dates: start: 20030929

REACTIONS (14)
  - CONSTIPATION [None]
  - DIZZINESS [None]
  - FATIGUE [None]
  - HEADACHE [None]
  - HYPERCALCAEMIA [None]
  - HYPERTENSION [None]
  - HYPOALBUMINAEMIA [None]
  - INCONTINENCE [None]
  - INFECTION [None]
  - MYALGIA [None]
  - NAUSEA [None]
  - OEDEMA [None]
  - PERIPHERAL SENSORY NEUROPATHY [None]
  - TREMOR [None]
